FAERS Safety Report 4557265-5 (Version None)
Quarter: 2005Q1

REPORT INFORMATION
  Report Type: 
  Country: None (occurrence: None)
  Receive Date: 20050118
  Receipt Date: 20050106
  Transmission Date: 20050727
  Serious: Yes (Death, Other)
  Sender: FDA-Public Use
  Company Number: ST-2005-008205

PATIENT
  Age: 83 Year
  Sex: Female

DRUGS (5)
  1. OLMETEC [Suspect]
     Indication: HYPERTENSION
     Dosage: 10 MG QD PO
     Route: 048
     Dates: start: 20041116, end: 20041226
  2. VASOLAN [Concomitant]
  3. TAKEPRON [Concomitant]
  4. ALDACTONE-A [Concomitant]
  5. ALLOID [Concomitant]

REACTIONS (6)
  - DRUG INEFFECTIVE [None]
  - HEPATIC CIRRHOSIS [None]
  - MULTI-ORGAN FAILURE [None]
  - PSEUDOMONAS INFECTION [None]
  - SEPSIS [None]
  - VARICES OESOPHAGEAL [None]
